FAERS Safety Report 7324133-5 (Version None)
Quarter: 2011Q1

REPORT INFORMATION
  Report Type: 
  Country: None (occurrence: None)
  Receive Date: 20110217
  Receipt Date: 20110204
  Transmission Date: 20110831
  Serious: Yes (Other)
  Sender: FDA-Public Use
  Company Number: 2011000594

PATIENT
  Age: 68 Year
  Sex: Male

DRUGS (9)
  1. ECOTRIN LOW EC (TABLET) [Concomitant]
  2. VITAMIN C CHW (CHEWABLE TABLET) [Concomitant]
  3. LIPITOR [Concomitant]
  4. PLAVIX [Concomitant]
  5. PREDNISONE TAB [Concomitant]
  6. TARCEVA [Suspect]
     Indication: PRODUCT USED FOR UNKNOWN INDICATION
     Dosage: (150 MG, EVERY DAY), ORAL
     Route: 048
     Dates: start: 20101122, end: 20110128
  7. COREG (CARVEDILOL) (TABLET) [Concomitant]
  8. DIOVAN (TABLET) [Concomitant]
  9. MULTIVITAMIN [Concomitant]

REACTIONS (2)
  - PULMONARY EMBOLISM [None]
  - PNEUMONITIS [None]
